FAERS Safety Report 6313047-5 (Version None)
Quarter: 2009Q3

REPORT INFORMATION
  Report Type: 
  Country: None (occurrence: None)
  Receive Date: 20090814
  Receipt Date: 20090805
  Transmission Date: 20100115
  Serious: Yes (Other)
  Sender: FDA-Public Use
  Company Number: 09US003012

PATIENT
  Age: 20 Month
  Sex: Male
  Weight: 11.3 kg

DRUGS (1)
  1. IBUPROFEN [Suspect]
     Dosage: 1200 MG, SINGLE, ORAL
     Route: 048
     Dates: start: 20090805, end: 20090805

REACTIONS (2)
  - ACCIDENTAL DRUG INTAKE BY CHILD [None]
  - OVERDOSE [None]
